FAERS Safety Report 4526710-3 (Version None)
Quarter: 2004Q4

REPORT INFORMATION
  Report Type: 
  Country: None (occurrence: None)
  Receive Date: 20041214
  Receipt Date: 20041207
  Transmission Date: 20050328
  Serious: Yes (Hospitalization)
  Sender: FDA-Public Use
  Company Number: CA-JNJFOC-20041202238

PATIENT
  Sex: Male

DRUGS (2)
  1. DURAGESIC [Suspect]
     Route: 062
     Dates: start: 20030601
  2. DURAGESIC [Suspect]
     Route: 062
     Dates: start: 20030601

REACTIONS (14)
  - DEPRESSED MOOD [None]
  - FEELING ABNORMAL [None]
  - FEELING COLD [None]
  - GASTRIC DISORDER [None]
  - HYPERHIDROSIS [None]
  - INSOMNIA [None]
  - MEDICATION ERROR [None]
  - MYALGIA [None]
  - NERVOUSNESS [None]
  - RHINORRHOEA [None]
  - SPINAL FUSION SURGERY [None]
  - THERAPEUTIC RESPONSE DECREASED [None]
  - TREMOR [None]
  - YAWNING [None]
